FAERS Safety Report 11410647 (Version 2)
Quarter: 2015Q4

REPORT INFORMATION
  Report Type: Spontaneous
  Country: US (occurrence: US)
  Receive Date: 20150824
  Receipt Date: 20151123
  Transmission Date: 20160304
  Serious: Yes (Hospitalization)
  Sender: FDA-Public Use
  Company Number: US-PFIZER INC-2015278795

PATIENT
  Age: 42 Year
  Sex: Male
  Weight: 109 kg

DRUGS (4)
  1. CELEBREX [Suspect]
     Active Substance: CELECOXIB
     Dosage: 200 MG, 2X/DAY
     Route: 048
     Dates: start: 2000
  2. CELEBREX [Suspect]
     Active Substance: CELECOXIB
     Indication: ARTHRITIS
     Dosage: 200 MG, 2X/DAY,  ONE IN THE MORNING AND ONE MID AFTERNOON
     Route: 048
  3. HYDROCODONE [Concomitant]
     Active Substance: HYDROCODONE
     Indication: PAIN
     Dosage: UNK, 4X/DAY
     Dates: start: 1999
  4. CYCLOBENZAPRINE [Concomitant]
     Active Substance: CYCLOBENZAPRINE
     Indication: SLEEP DISORDER
     Dosage: 10 MG, 1X/DAY
     Dates: start: 2002

REACTIONS (9)
  - Meniscus injury [Not Recovered/Not Resolved]
  - Lipoma [Recovered/Resolved]
  - Arthritis [Not Recovered/Not Resolved]
  - Blood cholesterol abnormal [Not Recovered/Not Resolved]
  - Prostatic disorder [Not Recovered/Not Resolved]
  - Joint injury [Not Recovered/Not Resolved]
  - Tendon rupture [Not Recovered/Not Resolved]
  - Gout [Not Recovered/Not Resolved]
  - Thyroid disorder [Not Recovered/Not Resolved]

NARRATIVE: CASE EVENT DATE: 2000
